FAERS Safety Report 11509412 (Version 1)
Quarter: 2015Q3

REPORT INFORMATION
  Report Type: Other
  Country: IT (occurrence: IT)
  Receive Date: 20150915
  Receipt Date: 20150915
  Transmission Date: 20151125
  Serious: Yes (Life-Threatening, Hospitalization)
  Sender: FDA-Public Use
  Company Number: IT-COR_00388_2015

PATIENT
  Age: 3 Year
  Sex: Female

DRUGS (11)
  1. BUSULFAN [Suspect]
     Active Substance: BUSULFAN
     Indication: PRIMITIVE NEUROECTODERMAL TUMOUR
     Dosage: HIGH-DOSE
  2. RADIOTHERAPY [Suspect]
     Active Substance: RADIATION THERAPY
     Indication: PRIMITIVE NEUROECTODERMAL TUMOUR
     Dosage: 19, 5 GY
  3. ETOPOSIDE. [Suspect]
     Active Substance: ETOPOSIDE
     Dosage: 2 COURSES, 150 MG/M2 FOR 2 DAYS
  4. CYCLOPHOSPHAMIDE. [Suspect]
     Active Substance: CYCLOPHOSPHAMIDE
     Indication: PRIMITIVE NEUROECTODERMAL TUMOUR
     Dosage: 2 COURSES, 1.5 GR/M2 FOR 2 DAYS
  5. DOXORUBICIN [Suspect]
     Active Substance: DOXORUBICIN
     Indication: PRIMITIVE NEUROECTODERMAL TUMOUR
     Dosage: 2 COURSES, 25 MG/M2 FOR 3 DAYS
  6. MELPHALAN [Suspect]
     Active Substance: MELPHALAN
     Indication: PRIMITIVE NEUROECTODERMAL TUMOUR
     Dosage: HIGH-DOSE
  7. ETOPOSIDE. [Suspect]
     Active Substance: ETOPOSIDE
     Indication: PRIMITIVE NEUROECTODERMAL TUMOUR
     Dosage: 2 COURSES, 150 MG/M2 FOR 3 DAYS
  8. VINCRISTINE [Suspect]
     Active Substance: VINCRISTINE
     Indication: PRIMITIVE NEUROECTODERMAL TUMOUR
     Dosage: 2 COURSES, 0.5 MG/M2 FOR 3 DAYS
  9. CARBOPLATIN. [Suspect]
     Active Substance: CARBOPLATIN
     Indication: PRIMITIVE NEUROECTODERMAL TUMOUR
     Dosage: 2 COURSES, 400 MG/M2 FOR 2 DAYS
  10. IFOSFAMIDE. [Suspect]
     Active Substance: IFOSFAMIDE
     Indication: PRIMITIVE NEUROECTODERMAL TUMOUR
     Dosage: 2 GR/M2 FOR 3 DAYS
  11. CYCLOPHOSPHAMIDE. [Suspect]
     Active Substance: CYCLOPHOSPHAMIDE
     Dosage: 2 COURSES, 1.5 MG/M2 FOR 2 DAYS

REACTIONS (2)
  - Febrile neutropenia [Unknown]
  - Bone marrow toxicity [Unknown]
